FAERS Safety Report 18595170 (Version 1)
Quarter: 2020Q4

REPORT INFORMATION
  Report Type: Spontaneous
  Country: NL (occurrence: FR)
  Receive Date: 20201209
  Receipt Date: 20201209
  Transmission Date: 20210114
  Serious: Yes (Death)
  Sender: FDA-Public Use
  Company Number: FR-FRESENIUS KABI-FK202012721

PATIENT
  Sex: Male

DRUGS (1)
  1. POTASSIUM CHLORIDE (MANUFACTURER UNKNOWN) [Suspect]
     Active Substance: POTASSIUM CHLORIDE
     Indication: HYPOKALAEMIA
     Dosage: 2G/20ML
     Route: 040
     Dates: start: 20201112, end: 20201112

REACTIONS (2)
  - Death [Fatal]
  - Wrong rate [Fatal]

NARRATIVE: CASE EVENT DATE: 20201112
